FAERS Safety Report 14148339 (Version 2)
Quarter: 2018Q1

REPORT INFORMATION
  Report Type: Spontaneous
  Country: SE (occurrence: SE)
  Receive Date: 20171101
  Receipt Date: 20180315
  Transmission Date: 20180508
  Serious: Yes (Other)
  Sender: FDA-Public Use
  Company Number: SE-BIOVITRUM-2017SE1011

PATIENT
  Age: 1 Year
  Sex: Female

DRUGS (6)
  1. PREDNISOLONE. [Concomitant]
     Active Substance: PREDNISOLONE
  2. SANDIMMUN [Concomitant]
     Active Substance: CYCLOSPORINE
  3. ETOPOSIDE. [Concomitant]
     Active Substance: ETOPOSIDE
  4. SOLU-MEDROL [Concomitant]
     Active Substance: METHYLPREDNISOLONE SODIUM SUCCINATE
  5. KINERET [Suspect]
     Active Substance: ANAKINRA
     Indication: STILL^S DISEASE
  6. ROACTEMRA [Concomitant]
     Active Substance: TOCILIZUMAB

REACTIONS (3)
  - Influenza [Recovered/Resolved]
  - Histiocytosis haematophagic [Recovered/Resolved]
  - Lung disorder [Recovered/Resolved]
